FAERS Safety Report 7805322-X (Version None)
Quarter: 2011Q4

REPORT INFORMATION
  Report Type: 
  Country: None (occurrence: None)
  Receive Date: 20111010
  Receipt Date: 20110927
  Transmission Date: 20120403
  Serious: Yes (Other)
  Sender: FDA-Public Use
  Company Number: NL-MYLANLABS-2011S1020203

PATIENT
  Age: 73 Year
  Sex: Male

DRUGS (3)
  1. METRONIDAZOLE [Suspect]
     Indication: HELICOBACTER INFECTION
     Dosage: 3DD 500MG
     Route: 048
     Dates: start: 20110901, end: 20110908
  2. AMOXICILLIN [Suspect]
     Indication: HELICOBACTER INFECTION
     Dosage: 2DD 1000 MG
     Route: 048
     Dates: start: 20110901, end: 20110908
  3. PANTOPRAZOLE [Suspect]
     Indication: HELICOBACTER INFECTION
     Dosage: 2DD 40 MG
     Route: 048
     Dates: start: 20110901, end: 20110908

REACTIONS (1)
  - WEIGHT DECREASED [None]
